FAERS Safety Report 9256471 (Version 2)
Quarter: 2013Q2

REPORT INFORMATION
  Report Type: Spontaneous
  Country: US (occurrence: US)
  Receive Date: 20130426
  Receipt Date: 20130510
  Transmission Date: 20140414
  Serious: Yes (Hospitalization)
  Sender: FDA-Public Use
  Company Number: US-BIOGENIDEC-2013BI036569

PATIENT
  Age: 53 Year
  Sex: Female

DRUGS (4)
  1. AVONEX [Suspect]
     Indication: MULTIPLE SCLEROSIS
     Route: 030
     Dates: start: 20031115, end: 2004
  2. AVONEX [Suspect]
     Indication: MULTIPLE SCLEROSIS
     Route: 030
     Dates: start: 2004, end: 201303
  3. AVONEX [Suspect]
     Indication: MULTIPLE SCLEROSIS
     Route: 030
     Dates: start: 201303
  4. OXYIR [Concomitant]
     Indication: PROCEDURAL PAIN
     Dates: start: 2004, end: 2004

REACTIONS (3)
  - Intervertebral disc protrusion [Recovered/Resolved]
  - Neurological complication associated with device [Recovered/Resolved]
  - Procedural pain [Unknown]
